FAERS Safety Report 18663672 (Version 1)
Quarter: 2020Q4

REPORT INFORMATION
  Report Type: Spontaneous
  Country: IT (occurrence: IT)
  Receive Date: 20201224
  Receipt Date: 20201224
  Transmission Date: 20210114
  Serious: Yes (Other)
  Sender: FDA-Public Use
  Company Number: IT-MYLANLABS-2020M1103351

PATIENT
  Age: 60 Year
  Sex: Male

DRUGS (1)
  1. RISPERIDONE. [Suspect]
     Active Substance: RISPERIDONE
     Indication: PRODUCT USED FOR UNKNOWN INDICATION
     Dosage: 5 MILLIGRAM, QD
     Route: 048
     Dates: start: 20201128, end: 20201129

REACTIONS (4)
  - Overdose [Unknown]
  - Sopor [Unknown]
  - Depressed level of consciousness [Unknown]
  - Medication error [Unknown]

NARRATIVE: CASE EVENT DATE: 20201129
